FAERS Safety Report 4580699-X (Version None)
Quarter: 2005Q1

REPORT INFORMATION
  Report Type: 
  Country: None (occurrence: None)
  Receive Date: 20050214
  Receipt Date: 20040513
  Transmission Date: 20050727
  Serious: Yes (Disabling, Other)
  Sender: FDA-Public Use
  Company Number: US-GLAXOSMITHKLINE-A0510756A

PATIENT
  Age: 8 Year
  Sex: Female
  Weight: 29.5 kg

DRUGS (3)
  1. LAMICTAL [Suspect]
     Dosage: 150MG PER DAY
     Route: 048
     Dates: start: 20040406
  2. TRILEPTAL [Concomitant]
     Dosage: 800MG PER DAY
  3. PHENOBARBITONE [Concomitant]
     Dosage: 15MG AT NIGHT

REACTIONS (1)
  - CONVULSION [None]
